FAERS Safety Report 6027107-X (Version None)
Quarter: 2009Q1

REPORT INFORMATION
  Report Type: 
  Country: None (occurrence: None)
  Receive Date: 20090105
  Receipt Date: 20081231
  Transmission Date: 20090719
  Serious: Yes (Other)
  Sender: FDA-Public Use
  Company Number: US-JNJFOC-20090100059

PATIENT
  Sex: Female

DRUGS (1)
  1. DOXIL [Suspect]
     Indication: UTERINE CANCER
     Dosage: FIRST INFUSION
     Route: 042

REACTIONS (2)
  - INTESTINAL OBSTRUCTION [None]
  - PALMAR-PLANTAR ERYTHRODYSAESTHESIA SYNDROME [None]
